FAERS Safety Report 17106384 (Version 1)
Quarter: 2019Q4

REPORT INFORMATION
  Report Type: Spontaneous
  Country: JP (occurrence: JP)
  Receive Date: 20191203
  Receipt Date: 20191203
  Transmission Date: 20200122
  Serious: Yes (Hospitalization)
  Sender: FDA-Public Use
  Company Number: JP-BAUSCH-BL-2019-062748

PATIENT
  Age: 73 Year
  Sex: Male

DRUGS (11)
  1. LANSOPRAZOLE. [Concomitant]
     Active Substance: LANSOPRAZOLE
     Indication: PRODUCT USED FOR UNKNOWN INDICATION
  2. PREDNISOLONE. [Suspect]
     Active Substance: PREDNISOLONE
     Indication: GRANULOMATOSIS WITH POLYANGIITIS
     Route: 048
  3. METHYLPREDNISOLONE. [Suspect]
     Active Substance: METHYLPREDNISOLONE
     Indication: GRANULOMATOSIS WITH POLYANGIITIS
     Dosage: PULSE
     Route: 042
  4. PREDNISOLONE. [Suspect]
     Active Substance: PREDNISOLONE
     Dosage: IN 2ND MONTH
     Route: 048
  5. PREDNISOLONE. [Suspect]
     Active Substance: PREDNISOLONE
     Dosage: IN 3RD MONTH
     Route: 048
  6. CYCLOPHOSPHAMIDE. [Concomitant]
     Active Substance: CYCLOPHOSPHAMIDE
     Route: 042
  7. PREDNISOLONE. [Suspect]
     Active Substance: PREDNISOLONE
     Dosage: IN 1ST MONTH
     Route: 048
  8. PREDNISOLONE. [Suspect]
     Active Substance: PREDNISOLONE
     Dosage: OVER THE NEXT 4 MONTHS (15TH MONTH)
     Route: 048
  9. AZATHIOPRINE. [Concomitant]
     Active Substance: AZATHIOPRINE
     Indication: GRANULOMATOSIS WITH POLYANGIITIS
     Route: 065
  10. PREDNISOLONE. [Suspect]
     Active Substance: PREDNISOLONE
     Dosage: FROM 11TH MONTH
     Route: 048
  11. CYCLOPHOSPHAMIDE. [Concomitant]
     Active Substance: CYCLOPHOSPHAMIDE
     Indication: GRANULOMATOSIS WITH POLYANGIITIS
     Dosage: HIGH-DOSE
     Route: 042

REACTIONS (1)
  - Kaposi^s sarcoma [Recovered/Resolved]
